FAERS Safety Report 4453831-6 (Version None)
Quarter: 2004Q3

REPORT INFORMATION
  Report Type: 
  Country: None (occurrence: None)
  Receive Date: 20040920
  Receipt Date: 20040909
  Transmission Date: 20050211
  Serious: Yes (Other)
  Sender: FDA-Public Use
  Company Number: US-ROCHE-380297

PATIENT

DRUGS (1)
  1. ROCEPHIN [Suspect]
     Indication: SEPSIS
     Route: 042

REACTIONS (2)
  - DRUG INEFFECTIVE [None]
  - SEPTIC SHOCK [None]
